FAERS Safety Report 15680244 (Version 1)
Quarter: 2018Q4

REPORT INFORMATION
  Report Type: Spontaneous
  Country: US (occurrence: US)
  Receive Date: 20181120
  Receipt Date: 20181120
  Transmission Date: 20190205
  Serious: Yes (Hospitalization)
  Sender: FDA-Public Use
  Company Number: None

PATIENT
  Age: 82 Year
  Sex: Male

DRUGS (1)
  1. DONEPEZIL. [Suspect]
     Active Substance: DONEPEZIL
     Indication: DEMENTIA ALZHEIMER^S TYPE
     Route: 048
     Dates: start: 20180815, end: 20180824

REACTIONS (12)
  - Myalgia [None]
  - Cardiac failure congestive [None]
  - Dizziness [None]
  - Nausea [None]
  - Asthenia [None]
  - Muscle spasms [None]
  - Pneumonia [None]
  - Fatigue [None]
  - Diarrhoea [None]
  - Vomiting [None]
  - Insomnia [None]
  - Decreased appetite [None]

NARRATIVE: CASE EVENT DATE: 20180824
